FAERS Safety Report 20810555 (Version 2)
Quarter: 2022Q2

REPORT INFORMATION
  Report Type: Spontaneous
  Country: US (occurrence: US)
  Receive Date: 20220510
  Receipt Date: 20220518
  Transmission Date: 20220721
  Serious: Yes (Hospitalization, Other)
  Sender: FDA-Public Use
  Company Number: US-PURDUE-USA-2022-0293609

PATIENT
  Age: 57 Year
  Sex: Male

DRUGS (7)
  1. SENOKOTXTRA [Suspect]
     Active Substance: SENNOSIDES
     Indication: Constipation
     Dosage: 1 TABLET, DAILY AS NEEDED
     Route: 048
  2. PHENOBARBITAL [Concomitant]
     Active Substance: PHENOBARBITAL
     Indication: Product used for unknown indication
     Dosage: UNK
     Route: 065
  3. VIMPAT [Concomitant]
     Active Substance: LACOSAMIDE
     Indication: Product used for unknown indication
     Dosage: UNK
     Route: 065
  4. TOPAMAX [Concomitant]
     Active Substance: TOPIRAMATE
     Indication: Product used for unknown indication
     Dosage: UNK
     Route: 065
  5. MIRALAX                            /00754501/ [Concomitant]
     Indication: Constipation
     Dosage: UNK
     Route: 048
  6. MIRALAX                            /00754501/ [Concomitant]
     Dosage: UNK
     Route: 048
     Dates: start: 20220430, end: 20220430
  7. CULTURELLE [Concomitant]
     Active Substance: LACTOBACILLUS RHAMNOSUS
     Indication: Product used for unknown indication
     Dosage: UNK
     Route: 065

REACTIONS (3)
  - Hypertonic bladder [Unknown]
  - Haematochezia [Unknown]
  - Burning sensation [Unknown]
